FAERS Safety Report 15181118 (Version 1)
Quarter: 2018Q3

REPORT INFORMATION
  Report Type: Spontaneous
  Country: TR (occurrence: TR)
  Receive Date: 20180723
  Receipt Date: 20180723
  Transmission Date: 20181010
  Serious: Yes (Other)
  Sender: FDA-Public Use
  Company Number: TR-SA-2018SA191842

PATIENT
  Age: 30 Year
  Sex: Female

DRUGS (1)
  1. TRIAMCINOLONE ACETONIDE. [Suspect]
     Active Substance: TRIAMCINOLONE ACETONIDE
     Indication: ALOPECIA
     Dosage: 1 ML, ONE MONTH INTERVALS

REACTIONS (6)
  - Retinal haemorrhage [Unknown]
  - Microembolism [Unknown]
  - Blindness [Unknown]
  - Retinal artery occlusion [Unknown]
  - Retinal thickening [Recovering/Resolving]
  - Eye injury [Recovered/Resolved]
